FAERS Safety Report 8982830 (Version 1)
Quarter: 2012Q4

REPORT INFORMATION
  Report Type: 
  Country: GB (occurrence: GB)
  Receive Date: 20121221
  Receipt Date: 20121221
  Transmission Date: 20130627
  Serious: Yes (Death, Other)
  Sender: FDA-Public Use
  Company Number: GB-GILEAD-2012-0066606

PATIENT
  Age: 60 Year
  Sex: Male

DRUGS (1)
  1. VISTIDE [Suspect]
     Indication: ADENOVIRUS INFECTION

REACTIONS (2)
  - Drug ineffective [Fatal]
  - Renal failure [Unknown]
